FAERS Safety Report 7686431-5 (Version None)
Quarter: 2011Q3

REPORT INFORMATION
  Report Type: 
  Country: None (occurrence: None)
  Receive Date: 20110816
  Receipt Date: 20110809
  Transmission Date: 20111222
  Serious: Yes (Other)
  Sender: FDA-Public Use
  Company Number: DE-TEVA-287340GER

PATIENT
  Sex: Female
  Weight: 64 kg

DRUGS (2)
  1. NITRENDIPIN [Concomitant]
  2. BISOPROLOL-RATIOPHARM 10MG TABLETTEN [Suspect]
     Indication: HYPERTENSION
     Route: 048
     Dates: start: 20020101

REACTIONS (16)
  - LIPID METABOLISM DISORDER [None]
  - DYSPNOEA [None]
  - APHASIA [None]
  - ASTHMA [None]
  - EXERCISE TOLERANCE DECREASED [None]
  - DISORIENTATION [None]
  - MEMORY IMPAIRMENT [None]
  - DELIRIUM [None]
  - HYPOAESTHESIA [None]
  - LACRIMATION DECREASED [None]
  - MUSCLE SPASMS [None]
  - NIGHTMARE [None]
  - HEADACHE [None]
  - DIZZINESS [None]
  - SYNCOPE [None]
  - RHINORRHOEA [None]
